FAERS Safety Report 9759914 (Version 1)
Quarter: 2013Q4

REPORT INFORMATION
  Report Type: Spontaneous
  Country: FR (occurrence: FR)
  Receive Date: 20131216
  Receipt Date: 20131216
  Transmission Date: 20140711
  Serious: Yes (Hospitalization, Other)
  Sender: FDA-Public Use
  Company Number: FR-PFIZER INC-2013356616

PATIENT
  Age: 5 Year
  Sex: Male

DRUGS (3)
  1. CEFPODOXIME PROXETIL [Suspect]
     Indication: BRONCHITIS
     Dosage: 1 DF, 2X/DAY
     Route: 048
     Dates: start: 20131028, end: 20131031
  2. PNEUMOREL [Suspect]
     Indication: BRONCHITIS
     Dosage: 1 TEA SPOON, TWICE A DAY
     Route: 048
     Dates: start: 20131028, end: 20131031
  3. DOLIPRANE [Concomitant]
     Dosage: UNK
     Dates: start: 20131028

REACTIONS (3)
  - Encephalopathy [Recovering/Resolving]
  - Gait disturbance [Recovering/Resolving]
  - Posture abnormal [Recovering/Resolving]
